FAERS Safety Report 8534900-8 (Version None)
Quarter: 2012Q3

REPORT INFORMATION
  Report Type: 
  Country: None (occurrence: None)
  Receive Date: 20120724
  Receipt Date: 20120717
  Transmission Date: 20120928
  Serious: Yes (Hospitalization, Other)
  Sender: FDA-Public Use
  Company Number: GB-ROCHE-1089479

PATIENT
  Sex: Female

DRUGS (3)
  1. ACTEMRA [Suspect]
     Indication: RHEUMATOID ARTHRITIS
     Dates: start: 20101104
  2. LITHIUM CARBONATE [Concomitant]
     Dosage: AT NIGHT
     Route: 048
  3. METHOTREXATE [Concomitant]

REACTIONS (8)
  - JOINT STIFFNESS [None]
  - MUSCULOSKELETAL STIFFNESS [None]
  - ARTHRALGIA [None]
  - PAIN IN EXTREMITY [None]
  - CONFUSIONAL STATE [None]
  - UNEVALUABLE EVENT [None]
  - LOCALISED INFECTION [None]
  - CEREBRAL ATROPHY [None]
